FAERS Safety Report 7900436-8 (Version None)
Quarter: 2011Q4

REPORT INFORMATION
  Report Type: 
  Country: None (occurrence: None)
  Receive Date: 20111108
  Receipt Date: 20110929
  Transmission Date: 20120403
  Serious: Yes (Other)
  Sender: FDA-Public Use
  Company Number: PHFR2010IE06003

PATIENT
  Sex: Male

DRUGS (13)
  1. RISPERIDONE [Suspect]
     Indication: SCHIZOPHRENIA
     Dosage: 5 MG, QD
     Route: 065
  2. NU-SEALS ASPIRIN [Concomitant]
     Dosage: 75 MG, QD
     Route: 065
  3. ZOPICLONE [Concomitant]
     Dosage: 7.5 MG NOCTE
     Route: 065
  4. OLANZAPINE [Suspect]
     Indication: SCHIZOPHRENIA
     Route: 065
  5. ALBUTEROL SULFATE AUTOHALER [Concomitant]
     Indication: CHRONIC OBSTRUCTIVE PULMONARY DISEASE
     Dosage: 2 DF, TID
  6. CLOZARIL [Suspect]
     Route: 048
     Dates: start: 20110602
  7. MOVIPREP [Concomitant]
     Dosage: 1 DF, QD
     Route: 048
  8. MOVIPREP [Concomitant]
     Dosage: 1 DF, BID
  9. OMEPRAZOLE [Concomitant]
     Dosage: 20 MG, QD
     Route: 065
  10. LIPITOR [Concomitant]
     Dosage: 10 MG, QD
     Route: 065
  11. AMISULPRIDE [Suspect]
     Indication: SCHIZOPHRENIA
     Dates: start: 20000101
  12. CLOZARIL [Suspect]
     Indication: SCHIZOPHRENIA
     Dosage: 500 MG, QD
     Route: 048
     Dates: start: 20021025, end: 20110202
  13. CHLORPROMAZINE [Concomitant]
     Route: 065

REACTIONS (33)
  - CONSTIPATION [None]
  - NEUTROPHIL COUNT DECREASED [None]
  - WHITE BLOOD CELL COUNT DECREASED [None]
  - WHITE BLOOD CELL COUNT INCREASED [None]
  - INSOMNIA [None]
  - SPLENOMEGALY [None]
  - AGITATION [None]
  - EOSINOPHIL COUNT INCREASED [None]
  - SPEECH DISORDER [None]
  - TEARFULNESS [None]
  - MENTAL IMPAIRMENT [None]
  - BODY TEMPERATURE INCREASED [None]
  - SCHIZOPHRENIA [None]
  - BLOOD ALKALINE PHOSPHATASE INCREASED [None]
  - MEAN CELL VOLUME ABNORMAL [None]
  - IMPULSIVE BEHAVIOUR [None]
  - AGGRESSION [None]
  - PSYCHOTIC DISORDER [None]
  - NEUTROPENIA [None]
  - LEUKOPENIA [None]
  - POLYCYTHAEMIA [None]
  - GENERAL PHYSICAL HEALTH DETERIORATION [None]
  - VOMITING [None]
  - RED BLOOD CELL COUNT INCREASED [None]
  - SOMNOLENCE [None]
  - SALIVARY HYPERSECRETION [None]
  - DECREASED APPETITE [None]
  - DISTURBANCE IN ATTENTION [None]
  - ABNORMAL BEHAVIOUR [None]
  - NEUTROPHIL COUNT INCREASED [None]
  - HAEMORRHOIDS [None]
  - HAEMATOCRIT INCREASED [None]
  - WEIGHT DECREASED [None]
